FAERS Safety Report 16046438 (Version 1)
Quarter: 2019Q1

REPORT INFORMATION
  Report Type: Report from Study
  Country: CA (occurrence: CA)
  Receive Date: 20190307
  Receipt Date: 20190307
  Transmission Date: 20190418
  Serious: Yes (Other)
  Sender: FDA-Public Use
  Company Number: CA-ROCHE-2276386

PATIENT
  Age: 60 Year
  Sex: Female

DRUGS (13)
  1. AMITRIPTYLIN [Concomitant]
     Active Substance: AMITRIPTYLINE
     Dosage: ONGOING: YES
     Route: 065
  2. NARATRIPTAN [Concomitant]
     Active Substance: NARATRIPTAN HYDROCHLORIDE
     Dosage: AS NEEDED ;ONGOING: YES
     Route: 065
  3. RELAXA (CANADA) [Concomitant]
     Indication: CONSTIPATION
     Dosage: ONGOING: YES
     Route: 065
  4. DOCUSATE DE SODIUM [Concomitant]
     Dosage: ONGOING: YES
     Route: 065
  5. OCUNOX [Concomitant]
     Dosage: ONGOING: YES
     Route: 065
  6. DITROPAN [Concomitant]
     Active Substance: OXYBUTYNIN CHLORIDE
     Dosage: ONGOING: YES
     Route: 065
  7. PROGESTERONE. [Concomitant]
     Active Substance: PROGESTERONE
     Dosage: ONGOING: YES
     Route: 065
  8. SENOKOT [Concomitant]
     Active Substance: SENNOSIDES
     Indication: CONSTIPATION
     Dosage: ONGOING: YES
     Route: 065
  9. ESTROGEL [Concomitant]
     Active Substance: ESTRADIOL
     Dosage: ONGOING: YES
     Route: 065
  10. LACTULOSE. [Concomitant]
     Active Substance: LACTULOSE
     Dosage: ONGOING: YES
     Route: 065
  11. RISEDRONATE [Concomitant]
     Active Substance: RISEDRONATE SODIUM
     Dosage: ONGOING: YES
     Route: 065
  12. OCREVUS [Suspect]
     Active Substance: OCRELIZUMAB
     Indication: RELAPSING-REMITTING MULTIPLE SCLEROSIS
     Dosage: 300 MG AT DAY 0 AND 14, THEN 600 MG EVERY 6 MONTH ;ONGOING: YES
     Route: 042
     Dates: start: 20180811
  13. RESTORIL [Concomitant]
     Active Substance: TEMAZEPAM
     Dosage: AS NEEDED ;ONGOING: YES
     Route: 065

REACTIONS (1)
  - Dyspnoea [Not Recovered/Not Resolved]

NARRATIVE: CASE EVENT DATE: 201902
